FAERS Safety Report 10961470 (Version 1)
Quarter: 2015Q1

REPORT INFORMATION
  Report Type: Spontaneous
  Country: US (occurrence: None)
  Receive Date: 20150326
  Receipt Date: 20150326
  Transmission Date: 20150721
  Serious: Yes (Disabling, Other)
  Sender: FDA-Public Use
  Company Number: None

PATIENT
  Age: 73 Year
  Sex: Female
  Weight: 77.11 kg

DRUGS (5)
  1. VIT B [Concomitant]
     Active Substance: VITAMINS
  2. PROBIOTICS CAPSULES [Concomitant]
  3. MULTI VITAMIN [Concomitant]
     Active Substance: VITAMINS
  4. VEGETARIAN GLUCOSAMINE [Concomitant]
  5. VANCOMYCIN HYDROCHLORIDE. [Suspect]
     Active Substance: VANCOMYCIN HYDROCHLORIDE
     Indication: CLOSTRIDIUM DIFFICILE INFECTION
     Dosage: 1 CAPSULE EVERY THIRD DAY
     Route: 048
     Dates: start: 20150112, end: 20150212

REACTIONS (4)
  - Product substitution issue [None]
  - Clostridium difficile infection [None]
  - Product quality issue [None]
  - Condition aggravated [None]

NARRATIVE: CASE EVENT DATE: 20150106
